FAERS Safety Report 18207055 (Version 2)
Quarter: 2020Q3

REPORT INFORMATION
  Report Type: Spontaneous
  Country: US (occurrence: US)
  Receive Date: 20200828
  Receipt Date: 20200831
  Transmission Date: 20201103
  Serious: Yes (Hospitalization, Other)
  Sender: FDA-Public Use
  Company Number: US-BIOVITRUM-2020US4490

PATIENT
  Age: 42 Year
  Sex: Female

DRUGS (4)
  1. KINERET [Suspect]
     Active Substance: ANAKINRA
     Indication: JUVENILE IDIOPATHIC ARTHRITIS
     Route: 058
  2. CORTICOSTEROIDS [Concomitant]
     Active Substance: CORTICOSTEROID NOS
  3. HYDROXYCHLOROQUINE [Concomitant]
     Active Substance: HYDROXYCHLOROQUINE
     Indication: JUVENILE IDIOPATHIC ARTHRITIS
  4. HYDROCORTISONE. [Concomitant]
     Active Substance: HYDROCORTISONE
     Dosage: 20 MG EVERY MORNING AND 10 MG IN THE AFTERNOON

REACTIONS (17)
  - Acute respiratory failure [Unknown]
  - Tibia fracture [Unknown]
  - Pneumonia [Unknown]
  - Maculopathy [Unknown]
  - Muscular weakness [Unknown]
  - Myopathy [Unknown]
  - Enterococcal infection [Unknown]
  - Encephalopathy [Unknown]
  - Septic shock [Unknown]
  - Subarachnoid haemorrhage [Unknown]
  - Urinary tract infection [Unknown]
  - Off label use [Recovered/Resolved]
  - Fall [Unknown]
  - Cervical vertebral fracture [Unknown]
  - Chronic inflammatory demyelinating polyradiculoneuropathy [Unknown]
  - Respiratory acidosis [Unknown]
  - Asthenia [Unknown]
